FAERS Safety Report 8349219-8 (Version None)
Quarter: 2012Q2

REPORT INFORMATION
  Report Type: 
  Country: None (occurrence: None)
  Receive Date: 20120510
  Receipt Date: 20120505
  Transmission Date: 20120825
  Serious: Yes (Hospitalization)
  Sender: FDA-Public Use
  Company Number: PHHY2012RU038958

PATIENT
  Sex: Male

DRUGS (3)
  1. IMATINIB MESYLATE [Suspect]
     Indication: CHRONIC MYELOID LEUKAEMIA
     Dosage: 400 MG, DAILY
     Route: 048
     Dates: start: 20110506
  2. OMEPRAZOLE [Concomitant]
  3. PAPAVERINE [Concomitant]

REACTIONS (3)
  - GASTRITIS EROSIVE [None]
  - OESOPHAGEAL DILATATION [None]
  - HIATUS HERNIA [None]
